FAERS Safety Report 15423231 (Version 1)
Quarter: 2018Q3

REPORT INFORMATION
  Report Type: Report from Study
  Country: ES (occurrence: ES)
  Receive Date: 20180925
  Receipt Date: 20180925
  Transmission Date: 20181010
  Serious: Yes (Hospitalization, Other)
  Sender: FDA-Public Use
  Company Number: ES-ELI_LILLY_AND_COMPANY-ES201809002857

PATIENT
  Age: 80 Year
  Sex: Female

DRUGS (5)
  1. ZARATOR                            /01326101/ [Concomitant]
     Active Substance: ATORVASTATIN CALCIUM
     Indication: CEREBROVASCULAR ACCIDENT
  2. TERIPARATIDE [Suspect]
     Active Substance: TERIPARATIDE
     Indication: SPINAL COMPRESSION FRACTURE
  3. TERIPARATIDE [Suspect]
     Active Substance: TERIPARATIDE
     Indication: OSTEOPOROSIS
     Dosage: 20 UG, DAILY
     Route: 058
     Dates: start: 20180825
  4. TERIPARATIDE [Suspect]
     Active Substance: TERIPARATIDE
     Indication: SPINAL FRACTURE
  5. PLAVIX [Concomitant]
     Active Substance: CLOPIDOGREL BISULFATE
     Indication: CEREBROVASCULAR ACCIDENT

REACTIONS (9)
  - Road traffic accident [Unknown]
  - Mood altered [Recovering/Resolving]
  - Fall [Unknown]
  - Blood sodium decreased [Recovered/Resolved]
  - Hypotension [Recovered/Resolved]
  - Nausea [Recovering/Resolving]
  - Hypertension [Unknown]
  - Headache [Recovered/Resolved]
  - Clavicle fracture [Not Recovered/Not Resolved]

NARRATIVE: CASE EVENT DATE: 2018
